FAERS Safety Report 8757887 (Version 1)
Quarter: 2012Q4

REPORT INFORMATION
  Report Type: 
  Country: DE (occurrence: DE)
  Receive Date: 20120828
  Receipt Date: 20120828
  Transmission Date: 20130627
  Serious: Yes (Hospitalization, Other)
  Sender: FDA-Public Use
  Company Number: DE-JNJFOC-20120810232

PATIENT
  Age: 63 Year
  Sex: Female
  Weight: 59 kg

DRUGS (5)
  1. XARELTO [Suspect]
     Indication: HIP ARTHROPLASTY
     Route: 048
     Dates: start: 20120803, end: 20120809
  2. XARELTO [Suspect]
     Indication: THROMBOSIS PROPHYLAXIS
     Route: 048
     Dates: start: 20120803, end: 20120809
  3. TEMAZEPAM [Concomitant]
     Route: 048
     Dates: start: 20120803
  4. PANTOPRAZOLE [Concomitant]
     Dates: start: 20120803
  5. INDOMETACIN [Concomitant]
     Route: 048
     Dates: start: 20120803

REACTIONS (5)
  - Haemorrhage [Recovered/Resolved]
  - Paraesthesia [Recovered/Resolved]
  - Musculoskeletal pain [Recovered/Resolved]
  - Haematoma [Recovered/Resolved]
  - Paraesthesia [Recovered/Resolved]
